FAERS Safety Report 6546936-7 (Version None)
Quarter: 2010Q1

REPORT INFORMATION
  Report Type: 
  Country: None (occurrence: None)
  Receive Date: 20100122
  Receipt Date: 20100114
  Transmission Date: 20100710
  Serious: Yes (Other)
  Sender: FDA-Public Use
  Company Number: US-PFIZER INC-2008079906

PATIENT
  Sex: Male
  Weight: 81.646 kg

DRUGS (6)
  1. CHANTIX [Suspect]
     Indication: SMOKING CESSATION THERAPY
     Dosage: UNK
     Route: 048
     Dates: end: 20090101
  2. CHANTIX [Suspect]
     Indication: TOBACCO USER
  3. FLEXERIL [Concomitant]
     Indication: HYPOTONIA
     Dosage: 10 MG, UNK
     Route: 048
     Dates: start: 20020101
  4. KLONOPIN [Concomitant]
     Indication: ANXIETY
     Dosage: 1 MG, 3X/DAY
     Route: 048
     Dates: start: 20020101
  5. NABILONE [Concomitant]
     Indication: INFLAMMATION
     Dosage: 150 MG, 1X/DAY
     Dates: start: 20020101
  6. VICODIN ES [Concomitant]
     Indication: PAIN
     Dosage: 750 MG, 2X/DAY
     Dates: start: 20020101

REACTIONS (12)
  - ABNORMAL DREAMS [None]
  - AGITATION [None]
  - ANXIETY [None]
  - BURNING SENSATION [None]
  - BURNOUT SYNDROME [None]
  - DEPRESSION [None]
  - EMOTIONAL DISORDER [None]
  - HEADACHE [None]
  - MALAISE [None]
  - POOR PERIPHERAL CIRCULATION [None]
  - SUICIDAL IDEATION [None]
  - THINKING ABNORMAL [None]
